FAERS Safety Report 12749244 (Version 2)
Quarter: 2016Q4

REPORT INFORMATION
  Report Type: Spontaneous
  Country: US (occurrence: US)
  Receive Date: 20160915
  Receipt Date: 20161013
  Transmission Date: 20170207
  Serious: Yes (Disabling)
  Sender: FDA-Public Use
  Company Number: ALCN2016US006357

PATIENT
  Age: 73 Year
  Sex: Male
  Weight: 81.64 kg

DRUGS (1)
  1. SYSTANE ULTRA [Suspect]
     Active Substance: POLYETHYLENE GLYCOL 400\PROPYLENE GLYCOL
     Indication: DRY EYE
     Dosage: UNK GTT, TID
     Route: 047
     Dates: start: 20120912

REACTIONS (3)
  - Headache [Unknown]
  - Concomitant disease aggravated [Unknown]
  - Eye pain [Unknown]
